FAERS Safety Report 7302770-1 (Version None)
Quarter: 2011Q1

REPORT INFORMATION
  Report Type: 
  Country: None (occurrence: None)
  Receive Date: 20110218
  Receipt Date: 20110208
  Transmission Date: 20110831
  Serious: Yes (Other)
  Sender: FDA-Public Use
  Company Number: BR-AMGEN-BRASP2011009328

PATIENT
  Age: 68 Year
  Sex: Male
  Weight: 65 kg

DRUGS (10)
  1. CELEBRA [Suspect]
     Indication: RHEUMATOID ARTHRITIS
     Dosage: UNK
     Route: 048
     Dates: end: 20070101
  2. ENALAPRIL [Concomitant]
     Indication: BLOOD PRESSURE
     Dosage: UNK
     Dates: start: 20070101
  3. INSULIN [Concomitant]
     Indication: DIABETES MELLITUS
     Dosage: UNK
     Dates: start: 19970101
  4. ENBREL [Suspect]
     Indication: RHEUMATOID ARTHRITIS
     Dosage: 50 MG, WEEKLY
     Route: 058
     Dates: start: 20100614
  5. PURAN T4 [Concomitant]
     Indication: HYPOTHYROIDISM
     Dosage: UNK
     Dates: start: 20070101
  6. RAMIPRIL/HYDROCHLOROTHIAZIDE [Concomitant]
     Dosage: UNK
  7. SIMVASTATIN [Concomitant]
     Indication: BLOOD CHOLESTEROL
     Dosage: UNK
     Dates: start: 20070101
  8. OMEPRAZOLE [Concomitant]
     Indication: GASTRIC DISORDER
     Dosage: UNK
  9. LAMIVUDINE [Concomitant]
     Dosage: UNK
     Dates: start: 20100607
  10. CYCLOSPORINE [Concomitant]
     Dosage: UNK
     Dates: start: 20100601

REACTIONS (1)
  - TOOTH FRACTURE [None]
